FAERS Safety Report 21781373 (Version 2)
Quarter: 2023Q1

REPORT INFORMATION
  Report Type: Report from Study
  Country: CN (occurrence: CN)
  Receive Date: 20221227
  Receipt Date: 20230122
  Transmission Date: 20230418
  Serious: Yes (Death, Other)
  Sender: FDA-Public Use
  Company Number: CN-SUN PHARMACEUTICAL INDUSTRIES LTD-2022R1-370641

PATIENT
  Age: 70 Year
  Sex: Male

DRUGS (1)
  1. DECITABINE [Suspect]
     Active Substance: DECITABINE
     Indication: Myelodysplastic syndrome
     Dosage: 6 MILLIGRAM/SQ. METER, DAILY
     Route: 065

REACTIONS (5)
  - Infection [Fatal]
  - Neoplasm progression [Unknown]
  - Pneumonia [Unknown]
  - Myelosuppression [Unknown]
  - Bacteraemia [Unknown]
